FAERS Safety Report 5106715-4 (Version None)
Quarter: 2006Q3

REPORT INFORMATION
  Report Type: 
  Country: None (occurrence: None)
  Receive Date: 20060731
  Receipt Date: 20060217
  Transmission Date: 20061208
  Serious: Yes (Other)
  Sender: FDA-Public Use
  Company Number: US-JNJFOC-20050705284

PATIENT
  Age: 13 Year
  Sex: Female
  Weight: 37.6032 kg

DRUGS (10)
  1. RISPERDAL [Suspect]
     Indication: AUTISM SPECTRUM DISORDER
     Dates: start: 20020101
  2. RISPERDAL [Suspect]
     Indication: PSYCHOTIC DISORDER
     Dates: start: 20020101
  3. RISPERDAL [Suspect]
     Indication: AUTISM SPECTRUM DISORDER
     Dates: start: 20040218
  4. RISPERDAL [Suspect]
     Indication: PSYCHOTIC DISORDER
     Dates: start: 20040218
  5. RISPERDAL [Suspect]
     Indication: AUTISM SPECTRUM DISORDER
     Dates: start: 20040803
  6. RISPERDAL [Suspect]
     Indication: PSYCHOTIC DISORDER
     Dates: start: 20040803
  7. RISPERDAL [Suspect]
     Indication: AUTISM SPECTRUM DISORDER
     Dates: start: 20041005
  8. RISPERDAL [Suspect]
     Indication: PSYCHOTIC DISORDER
     Dates: start: 20041005
  9. RISPERDAL [Suspect]
     Indication: AUTISM SPECTRUM DISORDER
     Dates: start: 20050330
  10. RISPERDAL [Suspect]
     Indication: PSYCHOTIC DISORDER
     Dates: start: 20050330

REACTIONS (4)
  - CONVULSION [None]
  - EMOTIONAL DISTRESS [None]
  - HEAD INJURY [None]
  - PAIN [None]
